FAERS Safety Report 7766216 (Version 11)
Quarter: 2012Q4

REPORT INFORMATION
  Report Type: Report from Study
  Country: JP (occurrence: JP)
  Receive Date: 20110119
  Receipt Date: 20120831
  Transmission Date: 20130627
  Serious: Yes (Life-Threatening, Hospitalization)
  Sender: FDA-Public Use
  Company Number: JP-PFIZER INC-2011010579

PATIENT
  Age: 66 Year
  Sex: Male

DRUGS (43)
  1. ADRIACIN [Suspect]
     Indication: ADULT T-CELL LYMPHOMA/LEUKAEMIA
     Dosage: 40 mg/m2, UNK
     Route: 041
     Dates: start: 20101007, end: 20101007
  2. ADRIACIN [Suspect]
     Dosage: 30 mg/m2, UNK
     Route: 041
     Dates: start: 20101014, end: 20101014
  3. ADRIACIN [Suspect]
     Dosage: 40 mg/m2, UNK
     Route: 041
     Dates: start: 20101116, end: 20101116
  4. ADRIACIN [Suspect]
     Dosage: 30 mg/m2, UNK
     Route: 041
     Dates: start: 20101124, end: 20101124
  5. ADRIACIN [Suspect]
     Dosage: 40 mg/m2, UNK
     Route: 041
     Dates: start: 20101222, end: 20101222
  6. ADRIACIN [Suspect]
     Dosage: 30 mg/m2, UNK
     Route: 041
     Dates: start: 20101229, end: 20101229
  7. METHOTREXATE SODIUM [Suspect]
     Indication: ADULT T-CELL LYMPHOMA/LEUKAEMIA
     Dosage: 15 mg, daily
     Dates: start: 20101118, end: 20101118
  8. AMLODIN [Suspect]
     Indication: HYPERTENSION
     Dosage: 5 mg, 1x/day
     Route: 048
     Dates: start: 20101008, end: 20110217
  9. DIFLUCAN [Suspect]
     Indication: ANTIFUNGAL PROPHYLAXIS
     Dosage: 100 mg, 1x/day
     Route: 048
     Dates: end: 20110111
  10. DIFLUCAN [Suspect]
     Dosage: UNK
     Route: 048
     Dates: start: 20110119, end: 20110128
  11. LYRICA [Suspect]
     Indication: PAIN
     Dosage: 75 mg, 1x/day
     Route: 048
     Dates: start: 20110629, end: 20110719
  12. VANCOMYCIN [Suspect]
     Dosage: 0.5 g, 2x/day
     Route: 041
     Dates: start: 20110107, end: 20110117
  13. UNSPECIFIED INGREDIENT [Suspect]
     Indication: ADULT T-CELL LYMPHOMA/LEUKAEMIA
     Dosage: 1 mg/kg, UNK
     Route: 041
     Dates: start: 20101008, end: 20101221
  14. ONCOVIN [Suspect]
     Indication: ADULT T-CELL LYMPHOMA/LEUKAEMIA
     Dosage: 1 mg/m2, UNK
     Route: 041
     Dates: start: 20101007, end: 20101222
  15. ENDOXAN [Suspect]
     Indication: ADULT T-CELL LYMPHOMA/LEUKAEMIA
     Dosage: 350 mg/m2, UNK
     Route: 041
     Dates: start: 20101007, end: 20101222
  16. PREDNISOLONE [Suspect]
     Indication: ADULT T-CELL LYMPHOMA/LEUKAEMIA
     Dosage: 40 mg/m2, UNK
     Route: 048
     Dates: start: 20101007, end: 20101229
  17. CYMERIN [Suspect]
     Indication: ADULT T-CELL LYMPHOMA/LEUKAEMIA
     Dosage: 60 mg/m2, UNK
     Route: 041
     Dates: start: 20101014, end: 20101229
  18. VINDESINE SULFATE [Suspect]
     Indication: ADULT T-CELL LYMPHOMA/LEUKAEMIA
     Dosage: 2.4 mg/m2, UNK
     Route: 041
     Dates: start: 20101026, end: 20101208
  19. CARBOPLATIN [Suspect]
     Indication: ADULT T-CELL LYMPHOMA/LEUKAEMIA
     Dosage: 250 mg/m2, UNK
     Route: 041
     Dates: start: 20101026, end: 20101208
  20. LASTET [Suspect]
     Indication: ADULT T-CELL LYMPHOMA/LEUKAEMIA
     Dosage: 100 mg/m2, 3x/day
     Route: 041
     Dates: start: 20101026, end: 20101208
  21. CYTARABINE [Suspect]
     Indication: ADULT T-CELL LYMPHOMA/LEUKAEMIA
     Dosage: 40 mg, daily
     Dates: start: 20101118, end: 20101118
  22. PREDONINE [Suspect]
     Indication: ADULT T-CELL LYMPHOMA/LEUKAEMIA
     Dosage: 10 mg, daily
     Dates: start: 20101118, end: 20101118
  23. TAKEPRON [Suspect]
     Indication: GASTROOESOPHAGEAL REFLUX DISEASE
     Dosage: 15 mg, 1x/day
     Route: 048
     Dates: end: 20110217
  24. TAKEPRON [Suspect]
     Dosage: 15 mg, 1x/day
     Route: 048
     Dates: start: 20110526, end: 20110719
  25. BAKTAR [Suspect]
     Indication: ANTIFUNGAL PROPHYLAXIS
     Dosage: 1 DF, 1x/day
     Route: 048
     Dates: end: 20110128
  26. BAKTAR [Suspect]
     Dosage: 1 DF, 1x/day
     Route: 048
     Dates: start: 20110715
  27. ZOVIRAX [Suspect]
     Indication: PROPHYLAXIS
     Dosage: 200 mg, 1x/day
     Route: 048
     Dates: end: 20110128
  28. ZOVIRAX [Suspect]
     Dosage: UNK
     Dates: start: 20110630, end: 20110708
  29. ZOVIRAX [Suspect]
     Dosage: 200 mg, 1x/day
     Route: 048
     Dates: start: 20110712, end: 20110719
  30. ZYLORIC [Suspect]
     Indication: HYPERURICAEMIA
     Dosage: 100 mg, 1x/day
     Route: 048
     Dates: end: 20110120
  31. ZYLORIC [Suspect]
     Dosage: 100 mg, 3x/day
     Route: 048
     Dates: start: 20110705, end: 20110719
  32. BIOFERMIN R [Suspect]
     Indication: PROCTITIS
     Dosage: UNK
     Route: 048
     Dates: start: 20101022, end: 20110217
  33. LIPIDIL [Suspect]
     Indication: HYPERLIPIDAEMIA
     Dosage: 100 DF, 1x/day
     Route: 048
     Dates: end: 20110126
  34. FENTANYL [Suspect]
     Indication: STOMATITIS
     Dosage: UNK
     Route: 041
     Dates: start: 20110102, end: 20110119
  35. MEROPEN [Suspect]
     Indication: PNEUMONIA
     Dosage: 0.5 g, 2x/day
     Route: 041
     Dates: start: 20110107, end: 20110124
  36. MEROPEN [Suspect]
     Dosage: 1 g, 3x/day
     Route: 041
     Dates: start: 20110704, end: 20110715
  37. MAGMITT [Suspect]
     Indication: CONSTIPATION
     Dosage: UNK
     Route: 048
     Dates: start: 20110107, end: 20110110
  38. PANTOSIN [Suspect]
     Indication: CONSTIPATION
     Dosage: UNK
     Route: 048
     Dates: start: 20110107, end: 20110110
  39. BARACLUDE [Suspect]
     Indication: HEPATITIS B
     Dosage: 0.5 mg, 1/2day
     Route: 048
     Dates: start: 20100629, end: 20110719
  40. VFEND [Concomitant]
     Dosage: 400 mg, 2x/day
     Route: 041
     Dates: start: 20110704, end: 20110718
  41. TARGOCID [Concomitant]
     Dosage: 400 mg, 2x/day
     Route: 041
     Dates: start: 20110706, end: 20110714
  42. CIPROXAN [Concomitant]
     Dosage: 200 mg, 3x/day
     Route: 048
     Dates: start: 20110715, end: 20110718
  43. SLOW-K [Concomitant]
     Dosage: 600 mg, 2x/day
     Route: 048
     Dates: start: 20110630, end: 20110724

REACTIONS (27)
  - Pneumonia [Recovering/Resolving]
  - Interstitial lung disease [Recovering/Resolving]
  - Herpes zoster [Unknown]
  - Renal disorder [Unknown]
  - Anaemia [Unknown]
  - Platelet count decreased [Unknown]
  - Leukopenia [Unknown]
  - Neutropenia [Unknown]
  - Lymphopenia [Unknown]
  - Blood albumin decreased [Unknown]
  - Alanine aminotransferase increased [Unknown]
  - Hyperglycaemia [Unknown]
  - Blood sodium decreased [Unknown]
  - Blood potassium decreased [Unknown]
  - Febrile neutropenia [Unknown]
  - Constipation [Unknown]
  - Headache [Unknown]
  - Stomatitis [Unknown]
  - Gastroenteritis [Unknown]
  - Balanoposthitis [Unknown]
  - Oedema [Unknown]
  - Cytomegalovirus enterocolitis [Unknown]
  - Antithrombin III decreased [Unknown]
  - Blood pressure increased [Unknown]
  - Blood fibrinogen decreased [Unknown]
  - Nausea [Unknown]
  - Alopecia [Unknown]
